FAERS Safety Report 10866470 (Version 1)
Quarter: 2015Q1

REPORT INFORMATION
  Report Type: Spontaneous
  Country: US (occurrence: None)
  Receive Date: 20150220
  Receipt Date: 20150220
  Transmission Date: 20150721
  Serious: Yes (Life-Threatening, Hospitalization)
  Sender: FDA-Public Use
  Company Number: None

PATIENT
  Age: 45 Year
  Sex: Male
  Weight: 72.58 kg

DRUGS (1)
  1. SINEMET [Suspect]
     Active Substance: CARBIDOPA\LEVODOPA
     Indication: PARKINSON^S DISEASE
     Dosage: 2 PILLS
     Route: 048
     Dates: start: 20141220, end: 20150204

REACTIONS (3)
  - Feeling abnormal [None]
  - Poisoning [None]
  - Flushing [None]

NARRATIVE: CASE EVENT DATE: 20150204
